FAERS Safety Report 16704884 (Version 2)
Quarter: 2019Q3

REPORT INFORMATION
  Report Type: Report from Study
  Country: JP (occurrence: JP)
  Receive Date: 20190814
  Receipt Date: 20190819
  Transmission Date: 20191004
  Serious: Yes (Death)
  Sender: FDA-Public Use
  Company Number: JP-BEH-2019101869

PATIENT
  Age: 74 Year
  Sex: Male
  Weight: 40.2 kg

DRUGS (15)
  1. PIARLE [Concomitant]
     Active Substance: LACTULOSE
     Indication: CEREBRAL HAEMORRHAGE
     Dosage: UNK
     Route: 048
     Dates: end: 20180726
  2. IDELVION [Suspect]
     Active Substance: COAGULATION FACTOR IX RECOMBINANT HUMAN
     Dosage: 1000 IU, 1 DAY
     Route: 042
     Dates: start: 20180712, end: 20180712
  3. IDELVION [Suspect]
     Active Substance: COAGULATION FACTOR IX RECOMBINANT HUMAN
     Dosage: 3000 IU, 1 DAY
     Route: 042
     Dates: start: 20180601, end: 20180601
  4. SYMMETREL [Concomitant]
     Active Substance: AMANTADINE HYDROCHLORIDE
     Indication: CEREBRAL HAEMORRHAGE
     Dosage: UNK
     Route: 048
     Dates: end: 20180726
  5. IDELVION [Suspect]
     Active Substance: COAGULATION FACTOR IX RECOMBINANT HUMAN
     Indication: FACTOR IX DEFICIENCY
     Dosage: 2000 IU, 1 DAY
     Route: 042
     Dates: start: 20180712, end: 20180712
  6. IDELVION [Suspect]
     Active Substance: COAGULATION FACTOR IX RECOMBINANT HUMAN
     Dosage: 1000 IU, 1 DAY
     Route: 042
     Dates: start: 20180712, end: 20180712
  7. IDELVION [Suspect]
     Active Substance: COAGULATION FACTOR IX RECOMBINANT HUMAN
     Dosage: 3000 IU, 1 DAY
     Route: 042
     Dates: start: 20180601, end: 20180601
  8. IDELVION [Suspect]
     Active Substance: COAGULATION FACTOR IX RECOMBINANT HUMAN
     Dosage: 3000 IU, 1 DAY
     Route: 042
     Dates: start: 20180615, end: 20180615
  9. AMPICILLIN SODIUM W/SULBACTAM SODIUM [Suspect]
     Active Substance: AMPICILLIN SODIUM\SULBACTAM SODIUM
     Indication: PRODUCT USED FOR UNKNOWN INDICATION
     Route: 065
  10. NEXIUM [Concomitant]
     Active Substance: ESOMEPRAZOLE MAGNESIUM
     Indication: GASTRIC ULCER
     Dosage: UNK
     Route: 048
     Dates: end: 20180726
  11. IDELVION [Suspect]
     Active Substance: COAGULATION FACTOR IX RECOMBINANT HUMAN
     Indication: FACTOR IX DEFICIENCY
     Dosage: 2000 IU, 1 DAY
     Route: 042
     Dates: start: 20180712, end: 20180712
  12. IDELVION [Suspect]
     Active Substance: COAGULATION FACTOR IX RECOMBINANT HUMAN
     Dosage: 3000 IU, 1 DAY
     Route: 042
     Dates: start: 20180615, end: 20180615
  13. IDELVION [Suspect]
     Active Substance: COAGULATION FACTOR IX RECOMBINANT HUMAN
     Dosage: 3000 IU, 1 DAY
     Route: 042
     Dates: start: 20180628, end: 20180628
  14. IDELVION [Suspect]
     Active Substance: COAGULATION FACTOR IX RECOMBINANT HUMAN
     Dosage: 3000 IU, 1 DAY
     Route: 042
     Dates: start: 20180628, end: 20180628
  15. E KEPPRA [Concomitant]
     Active Substance: LEVETIRACETAM
     Indication: CEREBRAL HAEMORRHAGE
     Dosage: UNK UNK, SINGLE
     Route: 048
     Dates: end: 20180726

REACTIONS (3)
  - Cerebral haemorrhage [Fatal]
  - Marasmus [Fatal]
  - Pneumonia aspiration [Fatal]

NARRATIVE: CASE EVENT DATE: 20180726
